FAERS Safety Report 4507491-6 (Version None)
Quarter: 2004Q4

REPORT INFORMATION
  Report Type: 
  Country: None (occurrence: None)
  Receive Date: 20041123
  Receipt Date: 20041112
  Transmission Date: 20050328
  Serious: Yes (Other)
  Sender: FDA-Public Use
  Company Number: JP-NOVOPROD-240493

PATIENT
  Age: 33 Year
  Sex: Male

DRUGS (2)
  1. NOVORAPID CHU [Suspect]
     Indication: ILL-DEFINED DISORDER
     Dates: start: 20041105
  2. HUMULIN R [Concomitant]
     Indication: ILL-DEFINED DISORDER
     Route: 058
     Dates: end: 20041105

REACTIONS (4)
  - ALANINE AMINOTRANSFERASE INCREASED [None]
  - ASPARTATE AMINOTRANSFERASE INCREASED [None]
  - CONDITION AGGRAVATED [None]
  - HEPATIC FUNCTION ABNORMAL [None]
